FAERS Safety Report 13085954 (Version 2)
Quarter: 2017Q1

REPORT INFORMATION
  Report Type: Report from Study
  Country: US (occurrence: US)
  Receive Date: 20170104
  Receipt Date: 20170113
  Transmission Date: 20170428
  Serious: Yes (Death)
  Sender: FDA-Public Use
  Company Number: US-PFIZER INC-2017002443

PATIENT
  Age: 83 Year
  Sex: Male

DRUGS (7)
  1. PEMETREXED [Suspect]
     Active Substance: PEMETREXED
     Indication: NON-SMALL CELL LUNG CANCER
     Dosage: 300 MG/M2, CYCLIC (BIWEEKLY DURING WEEKS 1, 3, 5, AND 7 OF XRT)
  2. FOLIC ACID. [Concomitant]
     Active Substance: FOLIC ACID
     Dosage: 1000 UG, DAILY
  3. PEMETREXED [Suspect]
     Active Substance: PEMETREXED
     Dosage: 300 UNK, UNK
  4. VITAMIN B12 [Concomitant]
     Active Substance: CYANOCOBALAMIN
     Dosage: 1000 UG, MONTHLY
     Route: 058
  5. CARBOPLATIN. [Suspect]
     Active Substance: CARBOPLATIN
     Indication: NON-SMALL CELL LUNG CANCER
     Dosage: UNK, CYCLIC (AUC = 6) DURING WEEKS 1 AND 5
  6. VITAMIN B12 [Concomitant]
     Active Substance: CYANOCOBALAMIN
     Dosage: 1000 UG, SINGLE
     Route: 058
  7. PEMETREXED [Suspect]
     Active Substance: PEMETREXED
     Dosage: 1200 MG/M2, UNK

REACTIONS (1)
  - Pneumonitis [Fatal]
